FAERS Safety Report 16066486 (Version 3)
Quarter: 2019Q2

REPORT INFORMATION
  Report Type: Report from Study
  Country: US (occurrence: US)
  Receive Date: 20190313
  Receipt Date: 20190506
  Transmission Date: 20190711
  Serious: Yes (Other)
  Sender: FDA-Public Use
  Company Number: US-PFIZER INC-2019070004

PATIENT
  Age: 51 Year
  Sex: Female

DRUGS (5)
  1. IBRANCE [Suspect]
     Active Substance: PALBOCICLIB
     Indication: BREAST CANCER
     Dosage: 125 MG, CYCLIC (DAILY, 21 DAYS ON AND 7 DAYS OFF)
     Route: 048
     Dates: start: 20181101
  2. IBRANCE [Suspect]
     Active Substance: PALBOCICLIB
     Dosage: 100 MG, CYCLIC (DAILY 21 DAYS ON AND 7 DAYS OFF)
     Route: 048
     Dates: start: 20190211, end: 20190426
  3. XGEVA [Suspect]
     Active Substance: DENOSUMAB
     Dosage: UNK
  4. LETROZOLE. [Suspect]
     Active Substance: LETROZOLE
     Dosage: UNK
  5. LUPRON [Suspect]
     Active Substance: LEUPROLIDE ACETATE
     Dosage: UNK

REACTIONS (13)
  - Headache [Recovered/Resolved]
  - Fatigue [Not Recovered/Not Resolved]
  - Chills [Unknown]
  - Upper respiratory tract infection bacterial [Recovered/Resolved]
  - Bone marrow failure [Unknown]
  - Arthralgia [Unknown]
  - Pain in extremity [Unknown]
  - Laryngitis [Unknown]
  - Stomatitis [Recovered/Resolved]
  - Leukopenia [Recovering/Resolving]
  - Pain [Unknown]
  - Back pain [Unknown]
  - Nausea [Unknown]

NARRATIVE: CASE EVENT DATE: 2018
